FAERS Safety Report 5217779-1 (Version None)
Quarter: 2007Q1

REPORT INFORMATION
  Report Type: 
  Country: None (occurrence: None)
  Receive Date: 20070124
  Receipt Date: 20070112
  Transmission Date: 20070707
  Serious: Yes (Hospitalization)
  Sender: FDA-Public Use
  Company Number: FR-BAXTER-2007BH000347

PATIENT
  Age: 74 Year
  Sex: Female
  Weight: 60 kg

DRUGS (5)
  1. FEIBA VH IMMUNO [Suspect]
     Indication: ABNORMAL CLOTTING FACTOR
     Route: 042
     Dates: start: 20061124, end: 20061124
  2. CORTANCYL [Concomitant]
     Indication: ASTHMA
     Route: 048
  3. FORADIL [Concomitant]
     Indication: ASTHMA
     Route: 055
  4. ESOMEPRAZOLE MAGNESIUM [Concomitant]
     Route: 048
  5. FLUTICASONE PROPIONATE [Concomitant]
     Indication: ASTHMA
     Route: 055

REACTIONS (1)
  - THROMBOPHLEBITIS SUPERFICIAL [None]
